FAERS Safety Report 9442341 (Version 1)
Quarter: 2013Q3

REPORT INFORMATION
  Report Type: Spontaneous
  Country: US (occurrence: US)
  Receive Date: 20130806
  Receipt Date: 20130806
  Transmission Date: 20140515
  Serious: No
  Sender: FDA-Public Use
  Company Number: US-GLAXOSMITHKLINE-A1008020A

PATIENT
  Sex: Female

DRUGS (5)
  1. ADVAIR [Suspect]
     Indication: ASTHMA
     Dosage: 2PUFF TWICE PER DAY
     Route: 055
  2. SINGULAR [Concomitant]
  3. ALLEGRA [Concomitant]
  4. NYSTATIN [Concomitant]
  5. FLUCONAZOLE [Concomitant]

REACTIONS (3)
  - Asthma [Not Recovered/Not Resolved]
  - Oral candidiasis [Not Recovered/Not Resolved]
  - Aphonia [Not Recovered/Not Resolved]
